FAERS Safety Report 9264198 (Version 1)
Quarter: 2013Q2

REPORT INFORMATION
  Report Type: Spontaneous
  Country: US (occurrence: US)
  Receive Date: 20130430
  Receipt Date: 20130430
  Transmission Date: 20140414
  Serious: Yes (Hospitalization)
  Sender: FDA-Public Use
  Company Number: US-ASTRAZENECA-2013SE28727

PATIENT
  Age: 338 Day
  Sex: Female

DRUGS (1)
  1. SYNAGIS [Suspect]
     Route: 030

REACTIONS (2)
  - Respiratory distress [Recovered/Resolved]
  - Bronchiolitis [Recovered/Resolved]
